FAERS Safety Report 17826748 (Version 1)
Quarter: 2020Q2

REPORT INFORMATION
  Report Type: Spontaneous
  Country: US (occurrence: US)
  Receive Date: 20200526
  Receipt Date: 20200526
  Transmission Date: 20200714
  Serious: No
  Sender: FDA-Public Use
  Company Number: US-APOTEX-2020AP008158

PATIENT
  Age: 72 Year
  Sex: Female

DRUGS (1)
  1. TRIAMTERENE AND HYDROCHLOROTHIAZIDE [Suspect]
     Active Substance: HYDROCHLOROTHIAZIDE\TRIAMTERENE
     Indication: HYPERTENSION
     Dosage: 0.5 DF, QD
     Route: 048

REACTIONS (5)
  - Skin hyperpigmentation [Not Recovered/Not Resolved]
  - Skin discolouration [Not Recovered/Not Resolved]
  - Thermal burn [Not Recovered/Not Resolved]
  - Condition aggravated [Not Recovered/Not Resolved]
  - Photosensitivity reaction [Not Recovered/Not Resolved]
